FAERS Safety Report 24928786 (Version 1)
Quarter: 2025Q1

REPORT INFORMATION
  Report Type: Spontaneous
  Country: US (occurrence: None)
  Receive Date: 20250204
  Receipt Date: 20250204
  Transmission Date: 20250408
  Serious: Yes (Life-Threatening, Hospitalization)
  Sender: FDA-CTU
  Company Number: None

PATIENT
  Age: 64 Year
  Sex: Male
  Weight: 153 kg

DRUGS (1)
  1. PIPERACILLIN SODIUM\TAZOBACTAM SODIUM [Suspect]
     Active Substance: PIPERACILLIN SODIUM\TAZOBACTAM SODIUM
     Indication: Upper respiratory tract infection
     Dosage: FREQUENCY : 3 TIMES A DAY;?
     Route: 042
     Dates: start: 20241218, end: 20241218

REACTIONS (9)
  - Hypotension [None]
  - Palpitations [None]
  - Pruritus [None]
  - Cardio-respiratory arrest [None]
  - Foaming at mouth [None]
  - Pruritus [None]
  - Pain [None]
  - Nausea [None]
  - Hypersensitivity [None]

NARRATIVE: CASE EVENT DATE: 20241218
